FAERS Safety Report 24579452 (Version 1)
Quarter: 2024Q4

REPORT INFORMATION
  Report Type: Spontaneous
  Country: PT (occurrence: PT)
  Receive Date: 20241105
  Receipt Date: 20241105
  Transmission Date: 20250114
  Serious: Yes (Other)
  Sender: CHEPLAPHARM
  Company Number: None

PATIENT
  Age: 73 Year
  Sex: Female

DRUGS (14)
  1. QUETIAPINE [Suspect]
     Active Substance: QUETIAPINE
     Indication: Bipolar disorder
     Dosage: 300 MG, DAILY?DAILY DOSE: 300 MILLIGRAM
  2. OLANZAPINE [Suspect]
     Active Substance: OLANZAPINE
     Indication: Bipolar disorder
     Dosage: 7.5 MG, DAILY?DAILY DOSE: 7.5 MILLIGRAM
  3. OLANZAPINE [Suspect]
     Active Substance: OLANZAPINE
     Indication: Bipolar disorder
     Dosage: INCREASED TO 15 MG, DAILY?DAILY DOSE: 15 MILLIGRAM
  4. OLANZAPINE [Suspect]
     Active Substance: OLANZAPINE
     Indication: Bipolar disorder
     Dosage: REDUCED TO 10 MG, DAILY?DAILY DOSE: 10 MILLIGRAM
  5. CLONAZEPAM [Suspect]
     Active Substance: CLONAZEPAM
     Indication: Bipolar disorder
     Dosage: 0.5 MG, DAILY?DAILY DOSE: 0.5 MILLIGRAM
  6. CLONAZEPAM [Suspect]
     Active Substance: CLONAZEPAM
     Indication: Bipolar disorder
     Dosage: DAILY DOSE: 25 MILLIGRAM
  7. LAMOTRIGINE [Suspect]
     Active Substance: LAMOTRIGINE
     Indication: Bipolar disorder
     Dosage: 100 MG, DAILY?DAILY DOSE: 100 MILLIGRAM
  8. LAMOTRIGINE [Suspect]
     Active Substance: LAMOTRIGINE
     Indication: Bipolar disorder
     Dosage: DAILY DOSE: 200 MILLIGRAM
  9. CLOZAPINE [Suspect]
     Active Substance: CLOZAPINE
     Indication: Mania
     Dosage: 25 MG, DAILY?DAILY DOSE: 25 MILLIGRAM
  10. LITHIUM [Suspect]
     Active Substance: LITHIUM
     Indication: Bipolar disorder
     Dosage: 200 MG, DAILY?DAILY DOSE: 200 MILLIGRAM
  11. LITHIUM [Suspect]
     Active Substance: LITHIUM
     Indication: Psoriasis
     Dosage: 200 MG, DAILY?DAILY DOSE: 200 MILLIGRAM
  12. LITHIUM [Suspect]
     Active Substance: LITHIUM
     Indication: Nephropathy
     Dosage: 200 MG, DAILY?DAILY DOSE: 200 MILLIGRAM
  13. DIAZEPAM [Suspect]
     Active Substance: DIAZEPAM
     Indication: Bipolar disorder
     Dosage: UNK, UNKNOWN
  14. FLUOXETINE [Concomitant]
     Active Substance: FLUOXETINE HYDROCHLORIDE
     Indication: Bipolar disorder
     Dosage: 20 MG, DAILY?DAILY DOSE: 20 MILLIGRAM

REACTIONS (2)
  - Pleurothotonus [Recovered/Resolved]
  - Off label use [Recovered/Resolved]
